FAERS Safety Report 17131093 (Version 1)
Quarter: 2019Q4

REPORT INFORMATION
  Report Type: Report from Study
  Country: CA (occurrence: CA)
  Receive Date: 20191209
  Receipt Date: 20191209
  Transmission Date: 20200122
  Serious: Yes (Hospitalization)
  Sender: FDA-Public Use
  Company Number: CA-BAUSCH-BL-2019-063892

PATIENT
  Age: 21 Year
  Sex: Female

DRUGS (1)
  1. SILIQ [Suspect]
     Active Substance: BRODALUMAB
     Indication: PSORIASIS
     Dosage: 210MG/1.5 ML, FIRST INJECTION AT WEEK 0
     Route: 058
     Dates: start: 20191128, end: 20191128

REACTIONS (6)
  - Swollen tongue [Unknown]
  - Asthenia [Unknown]
  - Speech disorder [Unknown]
  - Swelling face [Unknown]
  - Dizziness [Unknown]
  - Feeling cold [Unknown]

NARRATIVE: CASE EVENT DATE: 201911
